FAERS Safety Report 7599525-X (Version None)
Quarter: 2011Q3

REPORT INFORMATION
  Report Type: 
  Country: None (occurrence: None)
  Receive Date: 20110711
  Receipt Date: 20081108
  Transmission Date: 20111222
  Serious: Yes (Hospitalization, Other)
  Sender: FDA-Public Use
  Company Number: US-BAYER-200838938NA

PATIENT
  Age: 76 Year
  Sex: Male
  Weight: 67.12 kg

DRUGS (27)
  1. TRASYLOL [Suspect]
     Indication: AORTIC VALVE REPLACEMENT
     Dosage: 50ML/HR INFUSION
     Route: 042
     Dates: start: 20030605, end: 20030605
  2. METOPROLOL TARTRATE [Concomitant]
     Dosage: 25 MG, QD
     Route: 048
     Dates: start: 20030525, end: 20030717
  3. DIGOXIN [Concomitant]
     Dosage: 0.5 MG
     Route: 042
     Dates: start: 20030603, end: 20030603
  4. AMIODARONE HCL [Concomitant]
     Dosage: 16.6 ML/HR INFUSION
     Route: 042
     Dates: start: 20030603, end: 20030612
  5. EPINEPHRINE [Concomitant]
     Dosage: TITRATE
     Route: 042
     Dates: start: 20030605, end: 20030612
  6. INTEGRILIN [Concomitant]
     Dosage: 12CC/HR INFUSION
     Route: 042
     Dates: start: 20030525, end: 20030527
  7. DOPAMINE HCL [Concomitant]
     Dosage: TITRATE
     Route: 042
     Dates: start: 20030602, end: 20030612
  8. ALTACE [Concomitant]
     Dosage: 2.5 MG, QD
     Route: 048
     Dates: start: 20030525, end: 20030602
  9. MORPHINE [Concomitant]
     Dosage: 2 MG
     Route: 042
     Dates: start: 20030605, end: 20030605
  10. LASIX [Concomitant]
     Dosage: 40 MG, QD
     Route: 048
     Dates: start: 20030524, end: 20110628
  11. AMIODARONE HCL [Concomitant]
     Dosage: BOLUS
     Route: 042
     Dates: start: 20030603, end: 20030612
  12. INSULIN [Concomitant]
     Dosage: 10 U
     Dates: start: 20030605, end: 20030619
  13. RED BLOOD CELLS [Concomitant]
     Dosage: 4 U, ONCE
     Route: 042
  14. TRASYLOL [Suspect]
     Indication: PRODUCT USED FOR UNKNOWN INDICATION
     Dosage: 200 ML OF LOADING DOSE
     Route: 040
     Dates: start: 20030605, end: 20030605
  15. INTEGRILIN [Concomitant]
     Dosage: 6.8 MG BOLUS
     Route: 042
     Dates: start: 20030525, end: 20030527
  16. ROCEPHIN [Concomitant]
     Dosage: 1 G, QD
     Route: 042
     Dates: start: 20030602, end: 20030603
  17. PRIMAXIN [Concomitant]
     Dosage: 500 MG, TID
     Route: 042
     Dates: start: 20030603, end: 20030611
  18. DIGOXIN [Concomitant]
     Dosage: 0.25 MG
     Route: 042
     Dates: start: 20030603, end: 20030603
  19. DECADRON [Concomitant]
     Dosage: 20 MG
     Route: 042
     Dates: start: 20030524, end: 20030524
  20. HEPARIN [Concomitant]
     Dosage: 4000 UNITS/500ML
     Dates: start: 20030603, end: 20030606
  21. HEPARIN [Concomitant]
     Dosage: 400 MG, TOATL
     Route: 042
     Dates: start: 20030605, end: 20030605
  22. PLATELETS [Concomitant]
     Dosage: 10 U, ONCE
     Route: 042
  23. ASPIRIN [Concomitant]
     Dosage: 325 MG, QD
     Route: 048
     Dates: start: 20030524, end: 20071009
  24. LOVENOX [Concomitant]
     Dosage: 1 MG/KG
     Route: 058
     Dates: start: 20030524, end: 20030526
  25. DOBUTAMINE HCL [Concomitant]
     Dosage: TITRATE
     Route: 042
     Dates: start: 20030603, end: 20030612
  26. MILRINONE [Concomitant]
     Dosage: 35 MG
     Route: 042
     Dates: start: 20030605, end: 20030609
  27. LEVOPHED [Concomitant]
     Dosage: TITRATE
     Route: 042
     Dates: start: 20030603, end: 20030612

REACTIONS (10)
  - UNEVALUABLE EVENT [None]
  - ANHEDONIA [None]
  - MULTI-ORGAN FAILURE [None]
  - PAIN [None]
  - FEAR [None]
  - STRESS [None]
  - RENAL FAILURE [None]
  - ANXIETY [None]
  - EMOTIONAL DISTRESS [None]
  - INJURY [None]
